FAERS Safety Report 4599755-5 (Version None)
Quarter: 2005Q1

REPORT INFORMATION
  Report Type: 
  Country: None (occurrence: None)
  Receive Date: 20050303
  Receipt Date: 20050225
  Transmission Date: 20050727
  Serious: Yes (Hospitalization, Other)
  Sender: FDA-Public Use
  Company Number: KII-2005-0015339

PATIENT
  Age: 23 Year
  Sex: Male

DRUGS (3)
  1. OXYCODONE HCL [Suspect]
     Dosage: ORAL
     Route: 048
  2. COCAINE (COCAINE) [Suspect]
     Dosage: ORAL
     Route: 048
  3. ETHANOL (ETHANOL) [Suspect]
     Dosage: ORAL
     Route: 048

REACTIONS (10)
  - CHEST PAIN [None]
  - CONVULSION [None]
  - DEPRESSED LEVEL OF CONSCIOUSNESS [None]
  - DYSPNOEA [None]
  - HYPERTENSION [None]
  - ILEUS PARALYTIC [None]
  - NYSTAGMUS [None]
  - POLYSUBSTANCE ABUSE [None]
  - TACHYCARDIA [None]
  - VOMITING [None]
